FAERS Safety Report 18278918 (Version 1)
Quarter: 2020Q3

REPORT INFORMATION
  Report Type: Spontaneous
  Country: HR (occurrence: HR)
  Receive Date: 20200917
  Receipt Date: 20200917
  Transmission Date: 20201103
  Serious: Yes (Other)
  Sender: FDA-Public Use
  Company Number: HR-MYLANLABS-2020M1078622

PATIENT
  Age: 63 Year
  Sex: Male

DRUGS (10)
  1. RAMIPRIL. [Concomitant]
     Active Substance: RAMIPRIL
     Dosage: 5 MILLIGRAM
  2. PROPAFENONE. [Concomitant]
     Active Substance: PROPAFENONE
     Dosage: UNK
     Dates: end: 201707
  3. BISOPROLOL [Concomitant]
     Active Substance: BISOPROLOL
     Dosage: 5 MILLIGRAM
  4. AMIODARON                          /00133101/ [Concomitant]
     Active Substance: AMIODARONE
     Dosage: 200 MILLIGRAM
  5. SOTALOL. [Concomitant]
     Active Substance: SOTALOL
     Dosage: UNK
  6. ATORVASTATIN [Concomitant]
     Active Substance: ATORVASTATIN
     Dosage: 20 MILLIGRAM
  7. ASPIRIN PROTECT EC [Suspect]
     Active Substance: ASPIRIN
     Indication: PRODUCT USED FOR UNKNOWN INDICATION
     Dosage: UNK
     Dates: start: 2013
  8. CLOPIDOGREL [Suspect]
     Active Substance: CLOPIDOGREL BISULFATE
     Indication: PRODUCT USED FOR UNKNOWN INDICATION
     Dosage: 75 MILLIGRAM
  9. XARELTO [Suspect]
     Active Substance: RIVAROXABAN
     Indication: ATRIAL FIBRILLATION
     Dosage: 20 MILLIGRAM
     Dates: end: 201803
  10. DABIGATRAN [Suspect]
     Active Substance: DABIGATRAN
     Indication: PRODUCT USED FOR UNKNOWN INDICATION
     Dosage: 150 MG, BID

REACTIONS (7)
  - Palpitations [Unknown]
  - Atrial fibrillation [Unknown]
  - Gastric disorder [Recovered/Resolved]
  - Coronary artery stenosis [Unknown]
  - Dyslipidaemia [Unknown]
  - Hyperuricaemia [Unknown]
  - Coronary artery disease [Unknown]

NARRATIVE: CASE EVENT DATE: 201403
